FAERS Safety Report 6834762-0 (Version None)
Quarter: 2010Q3

REPORT INFORMATION
  Report Type: 
  Country: None (occurrence: None)
  Receive Date: 20100712
  Receipt Date: 20070615
  Transmission Date: 20110219
  Serious: No
  Sender: FDA-Public Use
  Company Number: US-PFIZER INC-2007032890

PATIENT
  Sex: Female
  Weight: 77.1 kg

DRUGS (16)
  1. CHANTIX [Suspect]
     Indication: SMOKING CESSATION THERAPY
     Route: 048
     Dates: start: 20070410
  2. PREVACID [Concomitant]
     Indication: GASTROOESOPHAGEAL REFLUX DISEASE
  3. SYNTHROID [Concomitant]
  4. ATIVAN [Concomitant]
  5. VALSARTAN [Concomitant]
  6. PEPCID [Concomitant]
     Indication: GASTROOESOPHAGEAL REFLUX DISEASE
  7. ALLEGRA [Concomitant]
  8. EVISTA [Concomitant]
  9. AVANDIA [Concomitant]
     Indication: DIABETES MELLITUS
  10. METFORMIN HCL [Concomitant]
     Indication: DIABETES MELLITUS
  11. MACRODANTIN [Concomitant]
     Indication: RENAL IMPAIRMENT
  12. URISED [Concomitant]
     Indication: RENAL IMPAIRMENT
  13. AZMACORT [Concomitant]
     Indication: ASTHMA
  14. COMBIVENT [Concomitant]
  15. RHINOCORT [Concomitant]
  16. HYDROCODONE BITARTRATE [Concomitant]
     Indication: PAIN

REACTIONS (3)
  - MEDICATION ERROR [None]
  - NAUSEA [None]
  - VOMITING [None]
